FAERS Safety Report 4926506-4 (Version None)
Quarter: 2006Q1

REPORT INFORMATION
  Report Type: 
  Country: None (occurrence: None)
  Receive Date: 20060228
  Receipt Date: 20050421
  Transmission Date: 20060701
  Serious: No
  Sender: FDA-Public Use
  Company Number: US-GLAXOSMITHKLINE-A0555242A

PATIENT
  Age: 24 Year
  Sex: Male
  Weight: 102.7 kg

DRUGS (4)
  1. LAMICTAL [Suspect]
     Indication: SCHIZOPHRENIA
     Dosage: 50MG PER DAY
     Route: 048
     Dates: start: 20050329
  2. EFFEXOR [Concomitant]
     Dates: start: 20030101
  3. PAXIL [Concomitant]
     Dates: start: 20030301
  4. RISPERDAL [Concomitant]
     Dates: start: 20030701

REACTIONS (1)
  - INSOMNIA [None]
